FAERS Safety Report 9237978 (Version 1)
Quarter: 2013Q2

REPORT INFORMATION
  Report Type: Spontaneous
  Country: FR (occurrence: FR)
  Receive Date: 20130418
  Receipt Date: 20130418
  Transmission Date: 20140414
  Serious: Yes (Hospitalization)
  Sender: FDA-Public Use
  Company Number: FR-JNJFOC-20130407084

PATIENT
  Age: 87 Year
  Sex: Female

DRUGS (3)
  1. XARELTO [Suspect]
     Indication: PRODUCT USED FOR UNKNOWN INDICATION
     Route: 048
     Dates: start: 20130227, end: 20130318
  2. INNOHEP [Concomitant]
     Route: 065
     Dates: start: 20130224
  3. PREVISCAN (FLUINDIONE) [Concomitant]
     Route: 065
     Dates: start: 20130217, end: 20130224

REACTIONS (3)
  - Haematoma [Recovering/Resolving]
  - Blood bilirubin increased [Recovering/Resolving]
  - Prothrombin time shortened [Recovering/Resolving]
